FAERS Safety Report 23898147 (Version 3)
Quarter: 2024Q3

REPORT INFORMATION
  Report Type: Report from Study
  Country: FR (occurrence: None)
  Receive Date: 20240524
  Receipt Date: 20240812
  Transmission Date: 20241017
  Serious: Yes (Hospitalization, Other)
  Sender: ASTRAZENECA
  Company Number: 2024A119118

PATIENT
  Sex: Male
  Weight: 91 kg

DRUGS (3)
  1. IMFINZI [Suspect]
     Active Substance: DURVALUMAB
     Indication: Bile duct cancer
     Route: 042
     Dates: start: 20240325
  2. GEMCITABINE [Concomitant]
     Active Substance: GEMCITABINE
     Indication: Bile duct cancer
     Dates: start: 20240325
  3. CISPLATIN [Concomitant]
     Active Substance: CISPLATIN
     Indication: Bile duct cancer
     Dates: start: 20240325

REACTIONS (1)
  - Acute coronary syndrome [Unknown]
